FAERS Safety Report 5274644-1 (Version None)
Quarter: 2007Q1

REPORT INFORMATION
  Report Type: 
  Country: None (occurrence: None)
  Receive Date: 20070320
  Receipt Date: 20070307
  Transmission Date: 20070707
  Serious: Yes (Hospitalization)
  Sender: FDA-Public Use
  Company Number: 2007PV028615

PATIENT
  Age: 63 Year
  Sex: Female
  Weight: 127.0072 kg

DRUGS (11)
  1. BYETTA [Suspect]
     Indication: DIABETES MELLITUS NON-INSULIN-DEPENDENT
     Dosage: SEE IMAGE
     Route: 058
     Dates: start: 20061010, end: 20070108
  2. BYETTA [Suspect]
     Indication: DIABETES MELLITUS NON-INSULIN-DEPENDENT
     Dosage: SEE IMAGE
     Route: 058
     Dates: start: 20070109
  3. REQUIP [Concomitant]
  4. DILTIAZEM CD [Concomitant]
  5. ALDACTONE [Concomitant]
  6. ATENOLOL [Concomitant]
  7. DIGOXIN [Concomitant]
  8. LASIX [Concomitant]
  9. COUMADIN [Concomitant]
  10. ZOCOR [Concomitant]
  11. AMARYL [Concomitant]

REACTIONS (2)
  - GASTROOESOPHAGEAL REFLUX DISEASE [None]
  - OESOPHAGITIS [None]
